FAERS Safety Report 6331290-6 (Version None)
Quarter: 2009Q3

REPORT INFORMATION
  Report Type: 
  Country: None (occurrence: None)
  Receive Date: 20090827
  Receipt Date: 20090819
  Transmission Date: 20100115
  Serious: Yes (Hospitalization, Other)
  Sender: FDA-Public Use
  Company Number: GB-ELI_LILLY_AND_COMPANY-GB200907005309

PATIENT
  Sex: Female
  Weight: 66 kg

DRUGS (13)
  1. ALIMTA [Suspect]
     Dosage: UNK, EVERY THREE WEEKS
     Route: 042
     Dates: start: 20090617
  2. VITAMIN B-12 [Concomitant]
     Dosage: UNK, UNKNOWN
     Route: 065
  3. FOLIC ACID [Concomitant]
     Dosage: UNK, UNKNOWN
     Route: 065
  4. CARBOPLATIN [Concomitant]
     Dosage: UNK, UNKNOWN
     Route: 065
     Dates: start: 20090617
  5. AMITRIPTYLINE [Concomitant]
     Dosage: 75 MG, DAILY (1/D)
     Route: 048
  6. CELEBREX [Concomitant]
     Dosage: 200 MG, DAILY (1/D)
     Route: 048
  7. DIHYDROCODEINE BITARTRATE INJ [Concomitant]
     Dosage: 30 MG, 4/D
     Route: 048
  8. PIZOTIFEN [Concomitant]
     Dosage: UNK, UNKNOWN
     Route: 065
  9. DOCUSATE [Concomitant]
     Dosage: UNK, UNKNOWN
     Route: 065
  10. ASPIRIN [Concomitant]
     Dosage: UNK, UNKNOWN
     Route: 065
  11. SUMATRIPTAN SUCCINATE [Concomitant]
     Dosage: UNK, UNKNOWN
     Route: 065
  12. OMEPRAZOLE [Concomitant]
     Dosage: UNK, UNKNOWN
     Route: 065
  13. GABAPENTIN [Concomitant]
     Dosage: UNK, UNKNOWN
     Route: 065

REACTIONS (5)
  - HAEMOPTYSIS [None]
  - PNEUMONIA [None]
  - RASH GENERALISED [None]
  - THROMBOSIS [None]
  - VOMITING [None]
